FAERS Safety Report 14291722 (Version 1)
Quarter: 2017Q4

REPORT INFORMATION
  Report Type: Spontaneous
  Country: US (occurrence: US)
  Receive Date: 20171215
  Receipt Date: 20171215
  Transmission Date: 20180321
  Serious: Yes (Hospitalization)
  Sender: FDA-Public Use
  Company Number: US-NOVOPROD-542362

PATIENT
  Age: 85 Year
  Sex: Male
  Weight: 90.7 kg

DRUGS (3)
  1. LEVEMIR [Suspect]
     Active Substance: INSULIN DETEMIR
     Dosage: UNKNOWN
     Route: 058
     Dates: start: 201702
  2. LEVEMIR [Suspect]
     Active Substance: INSULIN DETEMIR
     Indication: TYPE 2 DIABETES MELLITUS
     Dosage: 8 U, QD
     Route: 058
     Dates: start: 201609, end: 201702
  3. LEVEMIR [Suspect]
     Active Substance: INSULIN DETEMIR
     Dosage: 11 U, QD
     Route: 058
     Dates: start: 201702, end: 201702

REACTIONS (1)
  - Blood glucose fluctuation [Recovered/Resolved]

NARRATIVE: CASE EVENT DATE: 201702
